FAERS Safety Report 20323598 (Version 2)
Quarter: 2022Q1

REPORT INFORMATION
  Report Type: Report from Study
  Country: DE (occurrence: None)
  Receive Date: 20220111
  Receipt Date: 20220224
  Transmission Date: 20220423
  Serious: Yes (Hospitalization, Other)
  Sender: FDA-Public Use
  Company Number: DE-ROCHE-2817928

PATIENT
  Age: 60 Year
  Sex: Female
  Weight: 71 kg

DRUGS (7)
  1. TRASTUZUMAB [Suspect]
     Active Substance: TRASTUZUMAB
     Indication: Breast cancer
     Dosage: LAST DOSE BEFORE SAE 03/DEC/2021
     Route: 041
     Dates: start: 20210421, end: 20211203
  2. PERTUZUMAB [Suspect]
     Active Substance: PERTUZUMAB
     Indication: Breast cancer
     Dosage: LAST DOSE BEFORE SAE 03/DEC/2021
     Route: 042
     Dates: start: 20210421, end: 20211203
  3. ATEZOLIZUMAB [Suspect]
     Active Substance: ATEZOLIZUMAB
     Indication: Breast cancer
     Dosage: LAST DOSE BEFORE SAE 03/DEC/2021
     Route: 041
     Dates: start: 20210217, end: 20211203
  4. DOXORUBICIN [Suspect]
     Active Substance: DOXORUBICIN
     Indication: Breast cancer
     Dosage: LAST DOSE BEFORE SAE 31/MAR/2021
     Route: 042
     Dates: start: 20210217, end: 20210331
  5. CYCLOPHOSPHAMIDE [Suspect]
     Active Substance: CYCLOPHOSPHAMIDE
     Indication: Breast cancer
     Dosage: LAST DOSE BEFORE SAE 31/MAR/2021
     Route: 042
     Dates: start: 20210217, end: 20210331
  6. CARBOPLATIN [Suspect]
     Active Substance: CARBOPLATIN
     Indication: Breast cancer
     Dosage: 2 AREA UNDER CURVE?LAST DOSE BEFORE SAE 15/JUN/2021
     Route: 042
     Dates: start: 20210422, end: 20210615
  7. PACLITAXEL [Suspect]
     Active Substance: PACLITAXEL
     Indication: Breast cancer
     Dosage: LAST DOSE BEFORE SAE 15/JUN/2021
     Route: 042
     Dates: start: 20210422, end: 20210615

REACTIONS (2)
  - Hypersensitivity [Recovered/Resolved]
  - Pneumonitis [Recovered/Resolved]

NARRATIVE: CASE EVENT DATE: 20210421
